FAERS Safety Report 9526738 (Version 1)
Quarter: 2013Q3

REPORT INFORMATION
  Report Type: Spontaneous
  Country: CO (occurrence: CO)
  Receive Date: 20130916
  Receipt Date: 20130916
  Transmission Date: 20140515
  Serious: Yes (Hospitalization)
  Sender: FDA-Public Use
  Company Number: CO-INCYTE CORPORATION-2013IN002073

PATIENT
  Age: 73 Year
  Sex: Male

DRUGS (1)
  1. JAKAVI [Suspect]
     Indication: MYELOFIBROSIS
     Dosage: 20 MG, EACH 12 HOURS
     Route: 050
     Dates: start: 20130827

REACTIONS (1)
  - Pyrexia [Not Recovered/Not Resolved]
